FAERS Safety Report 8560704-6 (Version None)
Quarter: 2012Q2

REPORT INFORMATION
  Report Type: 
  Country: None (occurrence: None)
  Receive Date: 20120418
  Receipt Date: 20091019
  Transmission Date: 20120825
  Serious: Yes (Other)
  Sender: FDA-Public Use
  Company Number: PHEH2009US04450

PATIENT
  Age: 51 Year
  Sex: Male

DRUGS (2)
  1. ENABLEX [Suspect]
     Indication: HYPERTONIC BLADDER
     Dosage: 15 MG
  2. FINASTERIDE [Concomitant]

REACTIONS (5)
  - HYPERTONIC BLADDER [None]
  - DRUG DOSE OMISSION [None]
  - DRUG ADMINISTRATION ERROR [None]
  - URINARY RETENTION [None]
  - DRUG INEFFECTIVE [None]
